FAERS Safety Report 12262278 (Version 1)
Quarter: 2016Q2

REPORT INFORMATION
  Report Type: Spontaneous
  Country: NO (occurrence: NO)
  Receive Date: 20160413
  Receipt Date: 20160413
  Transmission Date: 20160815
  Serious: Yes (Hospitalization)
  Sender: FDA-Public Use
  Company Number: NO-009507513-1604NOR005171

PATIENT
  Age: 27 Year
  Sex: Female

DRUGS (4)
  1. AERIUS [Suspect]
     Active Substance: DESLORATADINE
     Dosage: UNK
     Dates: start: 2011, end: 2011
  2. KESTINE [Concomitant]
     Active Substance: EBASTINE
  3. AERIUS [Suspect]
     Active Substance: DESLORATADINE
     Dosage: 10 MG ONCE DAILY
     Route: 048
     Dates: start: 20160401, end: 20160404
  4. FEXOFENADINE [Concomitant]
     Active Substance: FEXOFENADINE\FEXOFENADINE HYDROCHLORIDE

REACTIONS (10)
  - Dyspnoea [Unknown]
  - Feeling hot [Unknown]
  - Diarrhoea [Unknown]
  - Vomiting [Recovered/Resolved]
  - Pruritus [Unknown]
  - Nausea [Unknown]
  - Abdominal pain upper [Unknown]
  - Skin fissures [Unknown]
  - Erythema [Not Recovered/Not Resolved]
  - Dermatitis atopic [Not Recovered/Not Resolved]

NARRATIVE: CASE EVENT DATE: 2011
